FAERS Safety Report 8421762-2 (Version None)
Quarter: 2012Q2

REPORT INFORMATION
  Report Type: 
  Country: None (occurrence: None)
  Receive Date: 20120601
  Receipt Date: 20120521
  Transmission Date: 20120825
  Serious: Yes (Other)
  Sender: FDA-Public Use
  Company Number: JP-2012-15295

PATIENT
  Sex: Male

DRUGS (11)
  1. SELARA (EPLERENONE) [Concomitant]
  2. URINORM (BENZBROMARONE) [Concomitant]
  3. LASIX [Concomitant]
  4. ALLOPURINOL [Concomitant]
  5. TANATRIL (IMIDAPRIL HYDROCHLORIDE) [Concomitant]
  6. SAMSCA [Suspect]
     Dosage: 15 MG MILLIGRAM(S), QD, ORAL
     Route: 048
     Dates: start: 20120501, end: 20120511
  7. PIMOBENDAN (PIMOBENDAN) [Concomitant]
  8. CASODEX [Concomitant]
  9. KREMEZIN (CHARCOAL, ACTIVATED) [Concomitant]
  10. SIGMART (NICORANDIL) [Concomitant]
  11. AMIODARONE HCL [Concomitant]

REACTIONS (1)
  - BLOOD CREATINE PHOSPHOKINASE INCREASED [None]
